FAERS Safety Report 10098167 (Version 3)
Quarter: 2014Q2

REPORT INFORMATION
  Report Type: Spontaneous
  Country: US (occurrence: None)
  Receive Date: 20140421
  Receipt Date: 20140623
  Transmission Date: 20141212
  Serious: Yes (Other)
  Sender: FDA-Public Use
  Company Number: AEGR000338

PATIENT
  Age: 65 Year
  Sex: Female
  Weight: 70.3 kg

DRUGS (7)
  1. JUXTAPID [Suspect]
     Indication: TYPE IIA HYPERLIPIDAEMIA
     Route: 048
     Dates: start: 20140228
  2. ALPRAZOLAM (ALPRAZOLAM), 0.5MG [Concomitant]
  3. CITALOPRAM (CITALOPRAM HYDROBROMIDE), 20 MG [Concomitant]
  4. ESTRACE (ESTRADIOL) 0.5MG [Concomitant]
  5. METAMUCIL (PLANTAGO OVATA) [Concomitant]
  6. OMEPRAZOLE (OMEPRAZOLE) [Concomitant]
  7. SYNTHROID (LEVOTHYROXINE SODIUM), 75 MCG [Concomitant]

REACTIONS (9)
  - Rectal haemorrhage [None]
  - Abdominal pain upper [None]
  - Constipation [None]
  - Flatulence [None]
  - Oral pain [None]
  - Back pain [None]
  - Movement disorder [None]
  - Diarrhoea [None]
  - Weight decreased [None]
